FAERS Safety Report 8915210 (Version 2)
Quarter: 2012Q4

REPORT INFORMATION
  Report Type: 
  Country: DE (occurrence: DE)
  Receive Date: 20121119
  Receipt Date: 20121224
  Transmission Date: 20130627
  Serious: Yes (Hospitalization)
  Sender: FDA-Public Use
  Company Number: DE-JNJFOC-20121106132

PATIENT
  Age: 96 Year
  Sex: Male
  Weight: 65 kg

DRUGS (8)
  1. XARELTO [Suspect]
     Indication: CEREBROVASCULAR ACCIDENT PROPHYLAXIS
     Route: 048
     Dates: start: 20120302
  2. XARELTO [Suspect]
     Indication: ATRIAL FIBRILLATION
     Route: 048
     Dates: start: 20120302
  3. CITALOPRAM [Concomitant]
     Indication: DEPRESSION
     Route: 048
  4. MACROGOL [Concomitant]
     Indication: CARDIAC FAILURE
     Route: 048
  5. FUROSEMIDE [Concomitant]
     Indication: CARDIAC FAILURE
     Route: 048
  6. L-DOPA [Concomitant]
     Indication: CARDIAC FAILURE
     Route: 048
  7. RAMIPRIL [Concomitant]
     Indication: HYPERTENSION
     Route: 048
  8. SEROQUEL [Concomitant]
     Indication: CONFUSIONAL STATE
     Route: 048

REACTIONS (1)
  - Anaemia [Recovering/Resolving]
